FAERS Safety Report 7893992-X (Version None)
Quarter: 2011Q4

REPORT INFORMATION
  Report Type: 
  Country: None (occurrence: None)
  Receive Date: 20111104
  Receipt Date: 20111102
  Transmission Date: 20120403
  Serious: No
  Sender: FDA-Public Use
  Company Number: US-PFIZER INC-2011269469

PATIENT
  Sex: Female
  Weight: 81.633 kg

DRUGS (3)
  1. CELEBREX [Suspect]
     Dosage: 200 MG, DAILY
     Route: 048
     Dates: start: 20111102
  2. NEXIUM [Concomitant]
     Indication: DYSPEPSIA
     Dosage: UNK
  3. CELEBREX [Suspect]
     Indication: BACK PAIN
     Dosage: 400 MG, DAILY (2 CAPSULES OF 200MG ONCE AT NIGHT)
     Route: 048
     Dates: start: 20111101, end: 20111101

REACTIONS (1)
  - DIZZINESS [None]
